FAERS Safety Report 11362812 (Version 1)
Quarter: 2015Q3

REPORT INFORMATION
  Report Type: Spontaneous
  Country: US (occurrence: None)
  Receive Date: 20150807
  Receipt Date: 20150807
  Transmission Date: 20151125
  Serious: Yes (Other)
  Sender: FDA-Public Use
  Company Number: US-H14001-15-01459

PATIENT
  Age: 31 Year
  Sex: Male

DRUGS (6)
  1. ESCITALOPRAM [Concomitant]
     Active Substance: ESCITALOPRAM OXALATE
  2. BUPROPION. [Concomitant]
     Active Substance: BUPROPION
  3. HYOSCYAMINE SULFATE. [Concomitant]
     Active Substance: HYOSCYAMINE SULFATE
  4. PANCRELIPASE. [Suspect]
     Active Substance: PANCRELIPASE
  5. OMEPRAZOLE. [Concomitant]
     Active Substance: OMEPRAZOLE
  6. TESTOSTERONE CYPIONATE. [Suspect]
     Active Substance: TESTOSTERONE CYPIONATE
     Indication: HORMONE REPLACEMENT THERAPY

REACTIONS (4)
  - Abdominal pain upper [None]
  - Carbohydrate antigen 19-9 increased [None]
  - Pancreatic cyst [None]
  - Carcinoembryonic antigen increased [None]
